FAERS Safety Report 22211243 (Version 2)
Quarter: 2023Q2

REPORT INFORMATION
  Report Type: Spontaneous
  Country: BR (occurrence: BR)
  Receive Date: 20230414
  Receipt Date: 20230424
  Transmission Date: 20230721
  Serious: Yes (Other)
  Sender: FDA-Public Use
  Company Number: BR-Axellia-004677

PATIENT
  Age: 69 Year
  Sex: Female

DRUGS (1)
  1. VANCOMYCIN [Suspect]
     Active Substance: VANCOMYCIN
     Indication: Antibiotic prophylaxis
     Dosage: 1 MG/0.1ML

REACTIONS (3)
  - Haemorrhagic occlusive retinal vasculitis [Not Recovered/Not Resolved]
  - Type III immune complex mediated reaction [Not Recovered/Not Resolved]
  - Glaucoma [Not Recovered/Not Resolved]
